FAERS Safety Report 12124574 (Version 1)
Quarter: 2016Q1

REPORT INFORMATION
  Report Type: Spontaneous
  Country: US (occurrence: None)
  Receive Date: 20160226
  Receipt Date: 20160226
  Transmission Date: 20160526
  Serious: No
  Sender: FDA-Public Use
  Company Number: None

PATIENT
  Sex: Male

DRUGS (1)
  1. TETRABENAZINE. [Suspect]
     Active Substance: TETRABENAZINE
     Indication: DYSTONIA
     Dosage: TETRABENAZINE 12.5 MG, 1/2 TABLET TWICE DAILY, ORALLY
     Route: 048
     Dates: start: 20160203

REACTIONS (3)
  - Incorrect dose administered [None]
  - Product substitution issue [None]
  - Product physical issue [None]
